FAERS Safety Report 8162481-X (Version None)
Quarter: 2012Q1

REPORT INFORMATION
  Report Type: 
  Country: None (occurrence: None)
  Receive Date: 20120224
  Receipt Date: 20120224
  Transmission Date: 20120608
  Serious: No
  Sender: FDA-Public Use
  Company Number: None

PATIENT
  Age: 25 Year
  Sex: Female

DRUGS (1)
  1. CYMBALTA [Suspect]
     Indication: ABDOMINAL PAIN
     Route: 048
     Dates: start: 20120220, end: 20120222

REACTIONS (3)
  - NAUSEA [None]
  - VOMITING [None]
  - DEHYDRATION [None]
